FAERS Safety Report 7129683-2 (Version None)
Quarter: 2010Q4

REPORT INFORMATION
  Report Type: 
  Country: None (occurrence: None)
  Receive Date: 20101130
  Receipt Date: 20101124
  Transmission Date: 20110411
  Serious: Yes (Other)
  Sender: FDA-Public Use
  Company Number: GB-PFIZER INC-2010157702

PATIENT
  Age: 43 Year
  Sex: Female

DRUGS (3)
  1. CHAMPIX [Suspect]
     Indication: SMOKING CESSATION THERAPY
     Dosage: 0.5 MG
  2. CHAMPIX [Suspect]
     Dosage: 0.5 MG, 2X/DAY
  3. CHAMPIX [Suspect]
     Dosage: 1 MG, 2X/DAY

REACTIONS (3)
  - MALAISE [None]
  - MOUTH HAEMORRHAGE [None]
  - MOUTH ULCERATION [None]
